FAERS Safety Report 4650104-3 (Version None)
Quarter: 2005Q2

REPORT INFORMATION
  Report Type: 
  Country: None (occurrence: None)
  Receive Date: 20050428
  Receipt Date: 20050411
  Transmission Date: 20051028
  Serious: Yes (Hospitalization)
  Sender: FDA-Public Use
  Company Number: US_0504115016

PATIENT
  Age: 58 Year
  Sex: Male

DRUGS (14)
  1. HUMATROPE [Suspect]
     Indication: GROWTH HORMONE DEFICIENCY
     Dosage: 0.56 MG DAY
     Dates: start: 19970718
  2. REGLAN [Concomitant]
  3. ANDROGEL [Concomitant]
  4. DANTRIUM [Concomitant]
  5. FOSAMAX [Concomitant]
  6. LAMICTAL [Concomitant]
  7. NEURONTIN (GABAPENTIN PFIZER) [Concomitant]
  8. OXYBUTYN (OXYBUTYNIN HYDROCHLORIDE) [Concomitant]
  9. PREDNISONE TAB [Concomitant]
  10. SERZONE [Concomitant]
  11. SYNTHROID (LEVOTHYROXIN SODIUM) [Concomitant]
  12. LARAFLEX (NAPROXEN MEPHA) [Concomitant]
  13. BENEFIBER (CYAMOPSIS TETRAGONOLOBUS GUM) [Concomitant]
  14. TYLENOL (CAPLET) [Concomitant]

REACTIONS (2)
  - FALL [None]
  - LOWER LIMB FRACTURE [None]
